FAERS Safety Report 6540529-3 (Version None)
Quarter: 2010Q1

REPORT INFORMATION
  Report Type: 
  Country: None (occurrence: None)
  Receive Date: 20100118
  Receipt Date: 20100112
  Transmission Date: 20100710
  Serious: Yes (Hospitalization)
  Sender: FDA-Public Use
  Company Number: NL-BIOGENIDEC-2010BI001199

PATIENT
  Age: 45 Year
  Sex: Female

DRUGS (2)
  1. AVONEX [Suspect]
     Indication: MULTIPLE SCLEROSIS
     Route: 030
     Dates: start: 20040201, end: 20091016
  2. PREDNISON [Concomitant]
     Indication: MULTIPLE SCLEROSIS

REACTIONS (4)
  - HAEMOLYSIS [None]
  - HYPERTENSION [None]
  - RENAL IMPAIRMENT [None]
  - THROMBOCYTOPENIA [None]
